FAERS Safety Report 6692522-8 (Version None)
Quarter: 2010Q2

REPORT INFORMATION
  Report Type: 
  Country: None (occurrence: None)
  Receive Date: 20100422
  Receipt Date: 20100414
  Transmission Date: 20101027
  Serious: Yes (Other)
  Sender: FDA-Public Use
  Company Number: B0648869A

PATIENT
  Sex: Male

DRUGS (1)
  1. ALKERAN [Suspect]
     Indication: DRUG USE FOR UNKNOWN INDICATION
     Route: 065

REACTIONS (2)
  - FEBRILE NEUTROPENIA [None]
  - STAPHYLOCOCCAL SEPSIS [None]
